FAERS Safety Report 6000171-X (Version None)
Quarter: 2008Q4

REPORT INFORMATION
  Report Type: 
  Country: None (occurrence: None)
  Receive Date: 20081215
  Receipt Date: 20081204
  Transmission Date: 20090506
  Serious: Yes (Hospitalization)
  Sender: FDA-Public Use
  Company Number: CA-PFIZER INC-2008032977

PATIENT

DRUGS (13)
  1. BLINDED *PLACEBO [Suspect]
     Indication: ARTHRITIS
  2. CELECOXIB [Suspect]
     Indication: ARTHRITIS
  3. BLINDED IBUPROFEN [Suspect]
     Indication: ARTHRITIS
  4. BLINDED NAPROXEN [Suspect]
     Indication: ARTHRITIS
  5. NEXIUM [Concomitant]
     Dosage: DAILY
     Route: 048
     Dates: start: 20070525
  6. LOZIDE [Concomitant]
     Route: 048
     Dates: start: 20020725
  7. MONITAN [Concomitant]
     Route: 048
     Dates: start: 20020725
  8. AAS [Concomitant]
     Route: 048
     Dates: start: 20040723
  9. LIPITOR [Concomitant]
     Route: 048
     Dates: start: 20020725
  10. VALSARTAN [Concomitant]
     Route: 048
     Dates: start: 20050716
  11. NORVASC [Concomitant]
     Route: 048
     Dates: start: 20050716
  12. EZETROL [Concomitant]
     Route: 048
     Dates: start: 20050808
  13. CORTISONE ACETATE TAB [Concomitant]
     Route: 061
     Dates: start: 20070921, end: 20070928

REACTIONS (1)
  - VOCAL CORD INFLAMMATION [None]
